FAERS Safety Report 9269656 (Version 2)
Quarter: 2013Q2

REPORT INFORMATION
  Report Type: Spontaneous
  Country: US (occurrence: US)
  Receive Date: 20130503
  Receipt Date: 20130618
  Transmission Date: 20140414
  Serious: Yes (Other)
  Sender: FDA-Public Use
  Company Number: US-ASTELLAS-2013US004532

PATIENT
  Age: 85 Year
  Sex: Female
  Weight: 55 kg

DRUGS (11)
  1. MYRBETRIQ [Suspect]
     Indication: HYPERTONIC BLADDER
     Dosage: 25 MG, UID/QD
     Route: 048
     Dates: start: 201302, end: 201303
  2. NEXIUM                             /01479302/ [Concomitant]
     Indication: GASTROOESOPHAGEAL REFLUX DISEASE
     Dosage: 40 MG, UID/QD
     Route: 048
  3. SYNTHROID [Concomitant]
     Indication: HYPOTHYROIDISM
     Dosage: .05 MG, UID/QD
     Route: 048
  4. ZETIA [Concomitant]
     Indication: BLOOD CHOLESTEROL
     Dosage: 10 MG, UID/QD
     Route: 048
  5. SINGULAIR [Concomitant]
     Indication: ASTHMA
     Dosage: 10 MG, UID/QD
     Route: 048
  6. LOSARTAN/HYDROCHLOORTHIAZIDE [Concomitant]
     Indication: HYPERTENSION
     Dosage: 100 - 125 MG, UID/QD
     Route: 048
  7. NIFEDIPINE ER [Concomitant]
     Indication: HYPERTENSION
     Dosage: 60 MG, UID/QD
     Route: 048
  8. ADVAIR [Concomitant]
     Indication: ASTHMA
     Dosage: 1 PUFF UNK, BID
  9. FUROSEMIDE [Concomitant]
     Indication: FLUID RETENTION
     Dosage: 20 MG, UID/QD
     Route: 048
  10. ASPIRIN [Concomitant]
     Indication: CARDIAC DISORDER
     Dosage: 81 MG, UID/QD
     Route: 048
  11. MULTIVITAMINS W/MINERALS [Concomitant]
     Indication: PRODUCT USED FOR UNKNOWN INDICATION
     Dosage: UNK
     Route: 065

REACTIONS (4)
  - Macular degeneration [Not Recovered/Not Resolved]
  - Intraocular pressure increased [Unknown]
  - Glaucoma [Not Recovered/Not Resolved]
  - Blood pressure increased [Not Recovered/Not Resolved]
